FAERS Safety Report 19298488 (Version 1)
Quarter: 2021Q2

REPORT INFORMATION
  Report Type: Report from Study
  Country: US (occurrence: US)
  Receive Date: 20210525
  Receipt Date: 20210525
  Transmission Date: 20210717
  Serious: No
  Sender: FDA-Public Use
  Company Number: US-LUNDBECK-DKLU3033012

PATIENT
  Age: 61 Year
  Sex: Female

DRUGS (7)
  1. COVID 19 VACCINE [Concomitant]
     Route: 065
     Dates: start: 20210309
  2. BOTOX [Concomitant]
     Active Substance: ONABOTULINUMTOXINA
     Indication: MIGRAINE
     Route: 065
  3. VYEPTI [Suspect]
     Active Substance: EPTINEZUMAB-JJMR
     Indication: MIGRAINE
     Route: 041
     Dates: start: 20200914
  4. VYEPTI [Suspect]
     Active Substance: EPTINEZUMAB-JJMR
     Dosage: 100MG AND 200MG TO MAKE 300MG
     Route: 041
     Dates: start: 20210401
  5. COVID 19 VACCINE [Concomitant]
     Indication: COVID-19
     Route: 065
  6. MELOXICAM. [Concomitant]
     Active Substance: MELOXICAM
     Indication: MIGRAINE
     Route: 065
  7. VYEPTI [Suspect]
     Active Substance: EPTINEZUMAB-JJMR
     Dosage: 100MG AND 200MG TO MAKE 300MG
     Route: 041
     Dates: start: 20210325

REACTIONS (3)
  - Migraine [Unknown]
  - Therapeutic response decreased [Unknown]
  - Inappropriate schedule of product administration [Unknown]

NARRATIVE: CASE EVENT DATE: 20200914
